FAERS Safety Report 11837553 (Version 1)
Quarter: 2015Q4

REPORT INFORMATION
  Report Type: Spontaneous
  Country: US (occurrence: US)
  Receive Date: 20151215
  Receipt Date: 20151215
  Transmission Date: 20160305
  Serious: Yes (Hospitalization)
  Sender: FDA-Public Use
  Company Number: US-SA-2015SA210285

PATIENT
  Age: 77 Year
  Sex: Female

DRUGS (6)
  1. URSODIOL. [Concomitant]
     Active Substance: URSODIOL
     Dates: start: 20140625
  2. LASIX [Suspect]
     Active Substance: FUROSEMIDE
     Dosage: 40MG MORNING AND 20 MG NIGHT
     Route: 048
     Dates: start: 20140319, end: 20141226
  3. ALLOPURINOL. [Concomitant]
     Active Substance: ALLOPURINOL
     Dates: start: 20140702
  4. SPIRONOLACTONE. [Concomitant]
     Active Substance: SPIRONOLACTONE
     Dates: start: 20140731
  5. BLINDED THERAPY [Suspect]
     Active Substance: INVESTIGATIONAL PRODUCT
     Indication: PRIMARY MYELOFIBROSIS
     Dosage: 10 MG IN THE MORNING AND 5 MG AT NIGHT
     Route: 048
     Dates: start: 20100115
  6. PROPANOLOL [Concomitant]
     Active Substance: PROPRANOLOL HYDROCHLORIDE

REACTIONS (1)
  - Acute kidney injury [Unknown]

NARRATIVE: CASE EVENT DATE: 20141226
